FAERS Safety Report 9626367 (Version 1)
Quarter: 2013Q4

REPORT INFORMATION
  Report Type: Spontaneous
  Country: US (occurrence: US)
  Receive Date: 20131016
  Receipt Date: 20131016
  Transmission Date: 20140711
  Serious: No
  Sender: FDA-Public Use
  Company Number: US-BAYER-2013-124574

PATIENT
  Sex: Female

DRUGS (2)
  1. ALEVE CAPLET [Suspect]
     Indication: HEADACHE
  2. ALLEGRA [Concomitant]
     Indication: HEADACHE

REACTIONS (2)
  - Posture abnormal [None]
  - Drug ineffective [None]
